FAERS Safety Report 21164135 (Version 1)
Quarter: 2022Q3

REPORT INFORMATION
  Report Type: Spontaneous
  Country: FR (occurrence: FR)
  Receive Date: 20220803
  Receipt Date: 20220803
  Transmission Date: 20221026
  Serious: Yes (Death, Hospitalization)
  Sender: FDA-Public Use
  Company Number: None

PATIENT
  Age: 79 Year
  Sex: Male
  Weight: 68 kg

DRUGS (2)
  1. PACLITAXEL [Suspect]
     Active Substance: PACLITAXEL
     Indication: Lung neoplasm malignant
     Dosage: DURATION: 37 DAYS, UNIT DOSE: 150 MG
     Dates: start: 20210914, end: 20211021
  2. CARBOPLATIN [Suspect]
     Active Substance: CARBOPLATIN
     Indication: Lung neoplasm malignant
     Dosage: DURATION: 30 DAYS, UNIT DOSE: 230 MG, CARBOPLATINE
     Dates: start: 20210914, end: 20211014

REACTIONS (4)
  - Anaemia [Recovering/Resolving]
  - Haemoptysis [Fatal]
  - Thrombocytopenia [Recovered/Resolved]
  - Leukopenia [Recovered/Resolved]

NARRATIVE: CASE EVENT DATE: 20210922
